FAERS Safety Report 7816147-3 (Version None)
Quarter: 2011Q4

REPORT INFORMATION
  Report Type: 
  Country: None (occurrence: None)
  Receive Date: 20111015
  Receipt Date: 20111014
  Transmission Date: 20120403
  Serious: Yes (Death)
  Sender: FDA-Public Use
  Company Number: CA-ROCHE-1001636

PATIENT
  Sex: Male
  Weight: 72 kg

DRUGS (6)
  1. PERINDOPRIL ERBUMINE [Concomitant]
  2. RIBAVIRIN [Suspect]
     Indication: HEPATITIS C
     Route: 048
     Dates: start: 20100705, end: 20110606
  3. SINGULAIR [Concomitant]
     Indication: ASTHMA
     Route: 048
  4. PEGASYS [Suspect]
     Indication: HEPATITIS C
     Route: 058
     Dates: start: 20100705, end: 20110606
  5. HYDROCHLOROTHIAZIDE [Concomitant]
     Indication: HYPERTENSION
     Route: 048
  6. METFORMIN HYDROCHLORIDE [Concomitant]
     Indication: DIABETES MELLITUS
     Route: 048

REACTIONS (1)
  - MYOCARDIAL INFARCTION [None]
